FAERS Safety Report 25191723 (Version 1)
Quarter: 2025Q2

REPORT INFORMATION
  Report Type: Spontaneous
  Country: US (occurrence: None)
  Receive Date: 20250411
  Receipt Date: 20250411
  Transmission Date: 20250716
  Serious: Yes (Death)
  Sender: FDA-CTU
  Company Number: None

PATIENT
  Age: 68 Year
  Sex: Female

DRUGS (1)
  1. PIRFENIDONE [Suspect]
     Active Substance: PIRFENIDONE
     Indication: Interstitial lung disease
     Dosage: 801MG TID ORAL?
     Route: 048
     Dates: start: 20241118, end: 20250321

REACTIONS (8)
  - Non-small cell lung cancer [None]
  - Metastatic neoplasm [None]
  - Metastases to central nervous system [None]
  - Metastases to lymph nodes [None]
  - Metastases to bone [None]
  - Metastases to adrenals [None]
  - Disease progression [None]
  - Anxiety [None]

NARRATIVE: CASE EVENT DATE: 20250321
